FAERS Safety Report 8550236-3 (Version None)
Quarter: 2012Q3

REPORT INFORMATION
  Report Type: 
  Country: None (occurrence: None)
  Receive Date: 20120718
  Receipt Date: 20120709
  Transmission Date: 20120928
  Serious: Yes (Other)
  Sender: FDA-Public Use
  Company Number: ADR-2012-01294

PATIENT
  Sex: Female

DRUGS (1)
  1. LIORESAL [Suspect]
     Indication: CEREBRAL PALSY
     Dosage: 554.3 MCG/DAY

REACTIONS (4)
  - DEVICE BREAKAGE [None]
  - DRUG INEFFECTIVE [None]
  - IMPLANT SITE EFFUSION [None]
  - TWIDDLER'S SYNDROME [None]
